FAERS Safety Report 16289448 (Version 1)
Quarter: 2019Q2

REPORT INFORMATION
  Report Type: Spontaneous
  Country: ES (occurrence: ES)
  Receive Date: 20190509
  Receipt Date: 20190509
  Transmission Date: 20190711
  Serious: Yes (Other)
  Sender: FDA-Public Use
  Company Number: ES-AUROBINDO-AUR-APL-2019-024597

PATIENT

DRUGS (4)
  1. QUETIAPINE. [Suspect]
     Active Substance: QUETIAPINE
     Indication: SKULL FRACTURE
     Dosage: 200 MILLIGRAM, 8 PER HOUR
     Route: 048
     Dates: start: 20180816
  2. QUETIAPINE. [Suspect]
     Active Substance: QUETIAPINE
     Dosage: 100MG, 8 PER HOUR
     Route: 048
     Dates: start: 20180729, end: 20180814
  3. RISPERDAL [Suspect]
     Active Substance: RISPERIDONE
     Indication: SKULL FRACTURE
     Dosage: 0,5 MG 0,5 ML, 8 PER HOUR
     Route: 048
     Dates: start: 20180822
  4. QUETIAPINE. [Suspect]
     Active Substance: QUETIAPINE
     Dosage: 200MG, 6 PER HOUR
     Route: 048
     Dates: start: 20180815, end: 20180816

REACTIONS (1)
  - Oculogyric crisis [Unknown]

NARRATIVE: CASE EVENT DATE: 20190415
